FAERS Safety Report 8603604-5 (Version None)
Quarter: 2012Q3

REPORT INFORMATION
  Report Type: 
  Country: None (occurrence: None)
  Receive Date: 20120817
  Receipt Date: 20120216
  Transmission Date: 20120928
  Serious: Yes (Other)
  Sender: FDA-Public Use
  Company Number: US-ROCHE-1039943

PATIENT
  Sex: Female

DRUGS (3)
  1. NORVASC [Concomitant]
     Indication: HYPERTENSION
  2. TYLENOL [Concomitant]
     Indication: BACK PAIN
     Route: 048
  3. AVASTIN [Suspect]
     Indication: AGE-RELATED MACULAR DEGENERATION
     Route: 042

REACTIONS (10)
  - AORTIC ANEURYSM [None]
  - LUNG INFECTION [None]
  - BACK PAIN [None]
  - BLOOD PRESSURE INCREASED [None]
  - OEDEMA PERIPHERAL [None]
  - MENTAL IMPAIRMENT [None]
  - VITREOUS FLOATERS [None]
  - PRODUCT COUNTERFEIT [None]
  - PRODUCT QUALITY ISSUE [None]
  - OCULAR HYPERAEMIA [None]
